FAERS Safety Report 22026540 (Version 2)
Quarter: 2023Q2

REPORT INFORMATION
  Report Type: Report from Study
  Country: JP (occurrence: JP)
  Receive Date: 20230223
  Receipt Date: 20230413
  Transmission Date: 20230722
  Serious: Yes (Hospitalization)
  Sender: FDA-Public Use
  Company Number: JP-002147023-NVSC2023JP028276

PATIENT
  Age: 44 Year
  Sex: Male
  Weight: 67 kg

DRUGS (44)
  1. YTB-323 [Suspect]
     Active Substance: YTB-323
     Indication: Acute lymphocytic leukaemia
     Dosage: 5X10E6 CELLS
     Route: 042
     Dates: start: 20220408
  2. CYCLOPHOSPHAMIDE [Suspect]
     Active Substance: CYCLOPHOSPHAMIDE
     Indication: Chemotherapy
     Dosage: UNK
     Route: 065
     Dates: start: 20220228, end: 20220302
  3. CYCLOPHOSPHAMIDE [Suspect]
     Active Substance: CYCLOPHOSPHAMIDE
     Dosage: UNK
     Route: 065
     Dates: start: 20220324, end: 20220324
  4. CYCLOPHOSPHAMIDE [Suspect]
     Active Substance: CYCLOPHOSPHAMIDE
     Dosage: UNK
     Route: 065
     Dates: start: 20220403, end: 20220405
  5. CYTARABINE [Suspect]
     Active Substance: CYTARABINE
     Indication: Chemotherapy
     Dosage: UNK
     Route: 065
     Dates: start: 20220318, end: 20220318
  6. FLUDARABINE [Suspect]
     Active Substance: FLUDARABINE PHOSPHATE
     Indication: Chemotherapy
     Dosage: UNK
     Route: 065
     Dates: start: 20220403, end: 20220405
  7. DOXORUBICIN HYDROCHLORIDE [Suspect]
     Active Substance: DOXORUBICIN HYDROCHLORIDE
     Indication: Chemotherapy
     Dosage: UNK
     Route: 065
     Dates: start: 20220303, end: 20220303
  8. DOXORUBICIN HYDROCHLORIDE [Suspect]
     Active Substance: DOXORUBICIN HYDROCHLORIDE
     Dosage: UNK
     Route: 065
     Dates: start: 20220324, end: 20220324
  9. METHOTREXATE [Suspect]
     Active Substance: METHOTREXATE
     Indication: Chemotherapy
     Dosage: UNK
     Route: 065
     Dates: start: 20220318, end: 20220318
  10. VINCRISTINE SULFATE [Suspect]
     Active Substance: VINCRISTINE SULFATE
     Indication: Chemotherapy
     Dosage: UNK
     Route: 065
     Dates: start: 20220303, end: 20220303
  11. VINCRISTINE SULFATE [Suspect]
     Active Substance: VINCRISTINE SULFATE
     Dosage: UNK
     Route: 065
     Dates: start: 20220324, end: 20220324
  12. PREDNISOLONE SODIUM SUCCINATE [Suspect]
     Active Substance: PREDNISOLONE SODIUM SUCCINATE
     Indication: Chemotherapy
     Dosage: UNK
     Route: 065
     Dates: start: 20220324, end: 20220328
  13. HYDROCORTISONE BUTYRATE [Concomitant]
     Active Substance: HYDROCORTISONE BUTYRATE
     Indication: Chronic graft versus host disease
     Dosage: UNK
     Route: 065
     Dates: start: 20220218
  14. MEROPENEM [Concomitant]
     Active Substance: MEROPENEM
     Indication: Infection prophylaxis
     Dosage: UNK
     Route: 065
     Dates: start: 20220209
  15. HEPARINOID [Concomitant]
     Indication: Dry skin prophylaxis
     Dosage: UNK
     Route: 065
     Dates: start: 20220219
  16. TOCILIZUMAB [Concomitant]
     Active Substance: TOCILIZUMAB
     Indication: Cytokine release syndrome
     Dosage: 8 MG/KG
     Route: 065
     Dates: start: 20220416, end: 20220416
  17. TOCILIZUMAB [Concomitant]
     Active Substance: TOCILIZUMAB
     Dosage: 8 MG/KG
     Route: 065
     Dates: start: 20220418, end: 20220418
  18. DEXTROSE\SODIUM CHLORIDE\SODIUM LACTATE [Concomitant]
     Active Substance: DEXTROSE\SODIUM CHLORIDE\SODIUM LACTATE
     Indication: Prophylaxis against dehydration
     Dosage: UNK
     Route: 065
     Dates: start: 20220216
  19. TACROLIMUS [Concomitant]
     Active Substance: TACROLIMUS
     Indication: Prophylaxis against graft versus host disease
     Dosage: UNK
     Route: 065
     Dates: start: 20220802, end: 20220824
  20. TACROLIMUS [Concomitant]
     Active Substance: TACROLIMUS
     Dosage: UNK
     Route: 065
     Dates: start: 20220825, end: 20220828
  21. TACROLIMUS [Concomitant]
     Active Substance: TACROLIMUS
     Dosage: UNK
     Route: 065
     Dates: start: 20220829, end: 20220830
  22. TACROLIMUS [Concomitant]
     Active Substance: TACROLIMUS
     Dosage: UNK
     Route: 065
     Dates: start: 20221003, end: 20221005
  23. TACROLIMUS [Concomitant]
     Active Substance: TACROLIMUS
     Dosage: UNK
     Route: 065
     Dates: start: 20221006, end: 20221007
  24. TACROLIMUS [Concomitant]
     Active Substance: TACROLIMUS
     Dosage: UNK
     Route: 065
     Dates: start: 20221008, end: 20221018
  25. MYCOPHENOLATE MOFETIL [Concomitant]
     Active Substance: MYCOPHENOLATE MOFETIL
     Indication: Prophylaxis against graft versus host disease
     Dosage: UNK
     Route: 065
     Dates: start: 20220803, end: 20220809
  26. MYCOPHENOLATE MOFETIL [Concomitant]
     Active Substance: MYCOPHENOLATE MOFETIL
     Dosage: UNK
     Route: 065
     Dates: start: 20220810, end: 20220825
  27. SOLDEM 3A [Concomitant]
     Active Substance: CARBOHYDRATES\POTASSIUM CHLORIDE\SODIUM CHLORIDE\SODIUM LACTATE
     Indication: Prophylaxis against dehydration
     Dosage: UNK
     Route: 065
     Dates: start: 20220217
  28. VANCOMYCIN HYDROCHLORIDE [Concomitant]
     Active Substance: VANCOMYCIN HYDROCHLORIDE
     Indication: Infection prophylaxis
     Dosage: UNK
     Route: 065
     Dates: start: 20220218
  29. KCL [Concomitant]
     Active Substance: POTASSIUM CHLORIDE
     Indication: Prophylaxis
     Dosage: UNK
     Route: 065
     Dates: start: 20220219
  30. MAGNESIUM SULFATE [Concomitant]
     Active Substance: MAGNESIUM SULFATE
     Indication: Prophylaxis
     Dosage: UNK
     Route: 065
     Dates: start: 20220219
  31. SODIUM PHOSPHATE, DIBASIC [Concomitant]
     Active Substance: SODIUM PHOSPHATE, DIBASIC
     Indication: Prophylaxis
     Dosage: UNK
     Route: 065
     Dates: start: 20220220
  32. ACETAMINOPHEN [Concomitant]
     Active Substance: ACETAMINOPHEN
     Indication: Chronic graft versus host disease
     Dosage: UNK
     Route: 065
     Dates: start: 20220223
  33. MIYA-BM [Concomitant]
     Active Substance: CLOSTRIDIUM BUTYRICUM SPORES STRAIN M-55
     Indication: Constipation
     Dosage: UNK
     Route: 065
     Dates: start: 20220218
  34. VONOPRAZAN FUMARATE [Concomitant]
     Active Substance: VONOPRAZAN FUMARATE
     Indication: Gastritis prophylaxis
     Dosage: UNK
     Route: 065
  35. FEBUXOSTAT [Concomitant]
     Active Substance: FEBUXOSTAT
     Indication: Hyperuricaemia
     Dosage: UNK
     Route: 065
  36. ENALAPRIL MALEATE [Concomitant]
     Active Substance: ENALAPRIL MALEATE
     Indication: Hypertension
     Dosage: UNK
     Route: 065
  37. FLUCONAZOLE [Concomitant]
     Active Substance: FLUCONAZOLE
     Indication: Infection prophylaxis
     Dosage: UNK
     Route: 065
  38. ACYCLOVIR [Concomitant]
     Active Substance: ACYCLOVIR
     Indication: Infection prophylaxis
     Dosage: UNK
     Route: 065
  39. CARVEDILOL [Concomitant]
     Active Substance: CARVEDILOL
     Indication: Hypertension
     Dosage: UNK
     Route: 065
  40. AMLODIPINE BESYLATE [Concomitant]
     Active Substance: AMLODIPINE BESYLATE
     Indication: Hypertension
     Dosage: UNK
     Route: 065
  41. OLANZAPINE [Concomitant]
     Active Substance: OLANZAPINE
     Indication: Insomnia
     Dosage: UNK
     Route: 065
  42. BILASTINE [Concomitant]
     Active Substance: BILASTINE
     Indication: Chronic graft versus host disease
     Dosage: UNK
     Route: 065
  43. LUBIPROSTONE [Concomitant]
     Active Substance: LUBIPROSTONE
     Indication: Constipation
     Dosage: UNK
     Route: 065
  44. MAGNESIUM OXIDE [Concomitant]
     Active Substance: MAGNESIUM OXIDE
     Indication: Constipation
     Dosage: UNK
     Route: 065

REACTIONS (1)
  - Epstein-Barr virus associated lymphoproliferative disorder [Not Recovered/Not Resolved]

NARRATIVE: CASE EVENT DATE: 20220823
